FAERS Safety Report 23502597 (Version 1)
Quarter: 2024Q1

REPORT INFORMATION
  Report Type: Spontaneous
  Country: US (occurrence: US)
  Receive Date: 20240208
  Receipt Date: 20240208
  Transmission Date: 20240409
  Serious: No
  Sender: FDA-Public Use
  Company Number: US-INTRA-CELLULAR THERAPIES, INC.-2023ICT00505

PATIENT
  Sex: Female

DRUGS (9)
  1. CAPLYTA [Suspect]
     Active Substance: LUMATEPERONE
     Indication: Bipolar disorder
     Dosage: 21 MG, 1X/DAY
     Route: 048
     Dates: start: 20230227, end: 20230321
  2. CAPLYTA [Suspect]
     Active Substance: LUMATEPERONE
     Indication: Major depression
     Dosage: 42 MG, 1X/DAY
     Route: 048
     Dates: start: 20230322
  3. CAPLYTA [Suspect]
     Active Substance: LUMATEPERONE
     Indication: Generalised anxiety disorder
  4. LAMICTAL [Concomitant]
     Active Substance: LAMOTRIGINE
  5. RISPERIDONE [Concomitant]
     Active Substance: RISPERIDONE
  6. GABAPENTIN [Concomitant]
     Active Substance: GABAPENTIN
  7. ONDANSETRON [Concomitant]
     Active Substance: ONDANSETRON
  8. HYDROXYZINE [Concomitant]
     Active Substance: HYDROXYZINE HYDROCHLORIDE
  9. VENLAFAXINE [Concomitant]
     Active Substance: VENLAFAXINE HYDROCHLORIDE

REACTIONS (1)
  - Heavy menstrual bleeding [Unknown]

NARRATIVE: CASE EVENT DATE: 20230101
